FAERS Safety Report 7408876-0 (Version None)
Quarter: 2011Q2

REPORT INFORMATION
  Report Type: 
  Country: None (occurrence: None)
  Receive Date: 20110412
  Receipt Date: 20110407
  Transmission Date: 20111010
  Serious: Yes (Life-Threatening, Hospitalization, Other)
  Sender: FDA-Public Use
  Company Number: PHHY2011FR29265

PATIENT
  Age: 74 Year
  Sex: Male

DRUGS (6)
  1. EXFORGE [Suspect]
     Indication: HYPERTENSION
     Dosage: 80/5 MG
     Route: 048
     Dates: start: 20080925, end: 20090630
  2. EXFORGE [Suspect]
     Dosage: 160/5 MG
     Dates: start: 20090701, end: 20100506
  3. LOPRESSIL [Concomitant]
  4. EXFORGE [Suspect]
     Dosage: 160/10 MG
     Dates: start: 20100507
  5. CRESTOR [Concomitant]
  6. JANUMET [Concomitant]

REACTIONS (4)
  - BRONCHOPNEUMONIA [None]
  - DYSPNOEA [None]
  - HYPOXIA [None]
  - INTERSTITIAL LUNG DISEASE [None]
